FAERS Safety Report 23539492 (Version 3)
Quarter: 2024Q1

REPORT INFORMATION
  Report Type: Spontaneous
  Country: AU (occurrence: AU)
  Receive Date: 20240219
  Receipt Date: 20240322
  Transmission Date: 20240410
  Serious: Yes (Hospitalization)
  Sender: FDA-Public Use
  Company Number: AU-BEH-2024168402

PATIENT
  Age: 6 Year
  Sex: Female
  Weight: 20.6 kg

DRUGS (1)
  1. HUMAN IMMUNOGLOBULIN G [Suspect]
     Active Substance: HUMAN IMMUNOGLOBULIN G
     Indication: Kawasaki^s disease
     Dosage: 40 GRAM
     Route: 042
     Dates: start: 20240117, end: 20240117

REACTIONS (8)
  - Livedo reticularis [Recovered/Resolved]
  - Pyrexia [Recovered/Resolved]
  - Tachycardia [Recovered/Resolved]
  - Respiratory distress [Recovered/Resolved]
  - Hypotension [Recovered/Resolved]
  - Oxygen saturation decreased [Recovered/Resolved]
  - Cyanosis [Recovered/Resolved]
  - Rash [Recovered/Resolved]

NARRATIVE: CASE EVENT DATE: 20240117
